FAERS Safety Report 8287548-7 (Version None)
Quarter: 2012Q2

REPORT INFORMATION
  Report Type: 
  Country: None (occurrence: None)
  Receive Date: 20120416
  Receipt Date: 20120402
  Transmission Date: 20120825
  Serious: Yes (Hospitalization)
  Sender: FDA-Public Use
  Company Number: PHHY2012DE028354

PATIENT
  Sex: Female
  Weight: 107 kg

DRUGS (2)
  1. MYCOPHENOLIC ACID [Suspect]
     Indication: PROPHYLAXIS AGAINST TRANSPLANT REJECTION
     Dosage: 1440 MG, DAILY
     Route: 048
     Dates: start: 20101205, end: 20101227
  2. MYCOPHENOLIC ACID [Suspect]
     Dosage: 1440 MG, DAILY
     Route: 048
     Dates: start: 20110120

REACTIONS (2)
  - HAEMATOMA [None]
  - SEPSIS [None]
